FAERS Safety Report 11532882 (Version 1)
Quarter: 2015Q3

REPORT INFORMATION
  Report Type: Spontaneous
  Country: US (occurrence: US)
  Receive Date: 20150903
  Receipt Date: 20150903
  Transmission Date: 20151125
  Serious: No
  Sender: FDA-Public Use
  Company Number: US-ELI_LILLY_AND_COMPANY-US201203009049

PATIENT
  Sex: Female

DRUGS (1)
  1. HUMALOG [Suspect]
     Active Substance: INSULIN LISPRO
     Indication: DIABETES MELLITUS
     Dosage: UNK UNK, UNKNOWN
     Route: 065

REACTIONS (9)
  - Peripheral swelling [Unknown]
  - Muscle spasms [Unknown]
  - Spinal pain [Unknown]
  - Weight increased [Unknown]
  - Blood potassium decreased [Recovering/Resolving]
  - Petechiae [Unknown]
  - Asthenia [Unknown]
  - Spinal column stenosis [Unknown]
  - Oedema [Unknown]

NARRATIVE: CASE EVENT DATE: 2011
